FAERS Safety Report 5354087-2 (Version None)
Quarter: 2007Q2

REPORT INFORMATION
  Report Type: 
  Country: None (occurrence: None)
  Receive Date: 20070612
  Receipt Date: 20070601
  Transmission Date: 20071010
  Serious: Yes (Hospitalization, Disabling)
  Sender: FDA-Public Use
  Company Number: B0470266A

PATIENT
  Sex: Male

DRUGS (5)
  1. AVANDIA [Suspect]
     Dosage: 4MG PER DAY
     Route: 048
     Dates: start: 20060101, end: 20070101
  2. BIGUANIDES [Concomitant]
     Route: 065
  3. RENITEC [Concomitant]
     Route: 065
     Dates: end: 20061201
  4. ALDACTONE [Concomitant]
     Route: 065
     Dates: end: 20061201
  5. BACTRIM [Concomitant]
     Route: 065
     Dates: end: 20061201

REACTIONS (6)
  - HYPERKALAEMIA [None]
  - MACULAR OEDEMA [None]
  - MALIGNANT HYPERTENSION [None]
  - RENAL FAILURE [None]
  - VISUAL ACUITY REDUCED [None]
  - WEIGHT INCREASED [None]
